FAERS Safety Report 10766513 (Version 4)
Quarter: 2015Q1

REPORT INFORMATION
  Report Type: Report from Study
  Country: US (occurrence: US)
  Receive Date: 20150205
  Receipt Date: 20150324
  Transmission Date: 20150721
  Serious: Yes (Life-Threatening, Hospitalization, Other)
  Sender: FDA-Public Use
  Company Number: US-009507513-1501USA011606

PATIENT
  Age: 71 Year
  Sex: Male
  Weight: 59.86 kg

DRUGS (8)
  1. TEMODAR [Suspect]
     Active Substance: TEMOZOLOMIDE
     Indication: GLIOBLASTOMA MULTIFORME
     Dosage: DAY 1- DAY 5 OF 28 DAY CYCLE
     Route: 048
     Dates: start: 20140820
  2. NICOTINE. [Concomitant]
     Active Substance: NICOTINE
     Indication: SMOKING CESSATION THERAPY
     Dosage: 21 MG, 1 IN 1 D
     Route: 062
     Dates: start: 20140815
  3. LEVETIRACETAM. [Concomitant]
     Active Substance: LEVETIRACETAM
     Indication: SEIZURE
     Dosage: 500 MG, 3 IN 1 D
     Route: 048
     Dates: start: 20140811
  4. TEMODAR [Suspect]
     Active Substance: TEMOZOLOMIDE
     Indication: CHEMOTHERAPY
     Dosage: 120 MG, X 43DAYS DURING RADIATION
     Route: 048
     Dates: start: 20140811
  5. ABT-414 [Suspect]
     Active Substance: INVESTIGATIONAL PRODUCT
     Indication: GLIOBLASTOMA MULTIFORME
     Dosage: 1.25 MG/KG, QOW
     Route: 042
     Dates: start: 20140820, end: 20141222
  6. DEXAMETHASONE SODIUM PHOSPHATE. [Concomitant]
     Active Substance: DEXAMETHASONE SODIUM PHOSPHATE
     Indication: PROPHYLAXIS
     Dosage: UNK, TID 2/D PRIOR INFUSION, DAY OF AND 4 DAY POST
     Route: 047
     Dates: start: 20140818
  7. ONDANSETRON HYDROCHLORIDE. [Concomitant]
     Active Substance: ONDANSETRON HYDROCHLORIDE
     Indication: NAUSEA
     Dosage: 4 MG, 1 IN 1D
     Route: 048
     Dates: start: 20140811
  8. BACTRIM [Concomitant]
     Active Substance: SULFAMETHOXAZOLE\TRIMETHOPRIM
     Indication: INFECTION PROPHYLAXIS
     Dosage: 160 MG, 1 IN 3 WK
     Route: 048
     Dates: start: 20140811

REACTIONS (3)
  - Lymphocyte count decreased [Recovered/Resolved]
  - Neutrophil count decreased [Recovered/Resolved]
  - White blood cell count decreased [Recovered/Resolved]

NARRATIVE: CASE EVENT DATE: 20150105
